FAERS Safety Report 4972005-3 (Version None)
Quarter: 2006Q2

REPORT INFORMATION
  Report Type: 
  Country: None (occurrence: None)
  Receive Date: 20060413
  Receipt Date: 20060404
  Transmission Date: 20061013
  Serious: Yes (Hospitalization, Other)
  Sender: FDA-Public Use
  Company Number: NSADSS2001000564

PATIENT
  Sex: Female
  Weight: 72 kg

DRUGS (6)
  1. REMICADE [Suspect]
     Route: 041
  2. REMICADE [Suspect]
     Route: 041
  3. REMICADE [Suspect]
     Indication: CROHN'S DISEASE
     Route: 041
  4. BUDESONIDE [Concomitant]
     Indication: CROHN'S DISEASE
     Route: 048
     Dates: start: 19991101
  5. SALOFALK [Concomitant]
     Indication: DRUG USE FOR UNKNOWN INDICATION
     Dates: start: 19991101
  6. IMUREK [Concomitant]
     Indication: CROHN'S DISEASE
     Route: 048
     Dates: start: 19991101

REACTIONS (3)
  - BONE TUBERCULOSIS [None]
  - CELLULITIS [None]
  - DISSEMINATED TUBERCULOSIS [None]
